FAERS Safety Report 13458934 (Version 5)
Quarter: 2017Q3

REPORT INFORMATION
  Report Type: Spontaneous
  Country: GB (occurrence: GB)
  Receive Date: 20170419
  Receipt Date: 20170904
  Transmission Date: 20171127
  Serious: Yes (Hospitalization, Other)
  Sender: FDA-Public Use
  Company Number: GB-009507513-1704GBR006969

PATIENT
  Age: 68 Year
  Sex: Female

DRUGS (28)
  1. ASPIRIN. [Suspect]
     Active Substance: ASPIRIN
     Dosage: UNK
     Route: 048
  2. ASPIRIN. [Suspect]
     Active Substance: ASPIRIN
     Dosage: UNK
  3. DOCUSATE SODIUM. [Suspect]
     Active Substance: DOCUSATE SODIUM
  4. EMLA [Suspect]
     Active Substance: LIDOCAINE\PRILOCAINE
     Indication: PRODUCT USED FOR UNKNOWN INDICATION
     Dosage: UNK, UNKNOWN
     Route: 065
  5. LANTHANUM CARBONATE. [Suspect]
     Active Substance: LANTHANUM CARBONATE
     Dosage: UNK, UNKNOWN
     Route: 065
  6. LANTHANUM CARBONATE. [Suspect]
     Active Substance: LANTHANUM CARBONATE
     Dosage: UNK, UNKNOWN
     Route: 065
  7. LANTHANUM CARBONATE. [Suspect]
     Active Substance: LANTHANUM CARBONATE
     Dosage: UNK UNK, UNKNOWN
     Route: 048
  8. FUROSEMIDE. [Suspect]
     Active Substance: FUROSEMIDE
     Indication: PRODUCT USED FOR UNKNOWN INDICATION
     Dosage: UNK
     Route: 048
  9. FUROSEMIDE. [Suspect]
     Active Substance: FUROSEMIDE
     Dosage: UNK
     Route: 048
  10. REPLAGAL [Suspect]
     Active Substance: AGALSIDASE ALFA
     Dosage: UNK, UNKNOWN
     Route: 041
  11. AMLODIPINE [Suspect]
     Active Substance: AMLODIPINE BESYLATE
     Indication: PRODUCT USED FOR UNKNOWN INDICATION
  12. OMEPRAZOLE. [Suspect]
     Active Substance: OMEPRAZOLE
  13. ATORVASTATIN [Suspect]
     Active Substance: ATORVASTATIN
  14. LANTHANUM CARBONATE. [Suspect]
     Active Substance: LANTHANUM CARBONATE
     Indication: PRODUCT USED FOR UNKNOWN INDICATION
     Dosage: UNK, UNKNOWN
     Route: 065
  15. LORATADINE. [Suspect]
     Active Substance: LORATADINE
     Dosage: UNK
     Route: 048
  16. LANTHANUM CARBONATE. [Suspect]
     Active Substance: LANTHANUM CARBONATE
     Dosage: UNK UNK, UNKNOWN
     Route: 048
  17. LANTHANUM CARBONATE. [Suspect]
     Active Substance: LANTHANUM CARBONATE
     Dosage: UNK, UNKNOWN
     Route: 065
  18. CITALOPRAM [Suspect]
     Active Substance: CITALOPRAM HYDROBROMIDE
     Indication: PRODUCT USED FOR UNKNOWN INDICATION
  19. LANTHANUM CARBONATE. [Suspect]
     Active Substance: LANTHANUM CARBONATE
     Dosage: UNK, UNKNOWN
     Route: 065
  20. LANTHANUM CARBONATE. [Suspect]
     Active Substance: LANTHANUM CARBONATE
     Dosage: UNK UNK, UNKNOWN
     Route: 048
  21. LANTHANUM CARBONATE. [Suspect]
     Active Substance: LANTHANUM CARBONATE
     Dosage: UNK, UNKNOWN
     Route: 065
  22. REPLAGAL [Suspect]
     Active Substance: AGALSIDASE ALFA
     Indication: PRODUCT USED FOR UNKNOWN INDICATION
     Dosage: UNK
  23. ASPIRIN. [Suspect]
     Active Substance: ASPIRIN
     Indication: PRODUCT USED FOR UNKNOWN INDICATION
     Dosage: UNK
     Route: 048
  24. EZETROL [Suspect]
     Active Substance: EZETIMIBE
     Dosage: UNK UNK, UNKNOWN
     Route: 048
  25. ADCAL (CALCIUM CARBONATE) [Suspect]
     Active Substance: CALCIUM CARBONATE
     Indication: PRODUCT USED FOR UNKNOWN INDICATION
     Dosage: UNK, UNKNOWN
     Route: 065
  26. ALLOPURINOL. [Suspect]
     Active Substance: ALLOPURINOL
     Indication: PRODUCT USED FOR UNKNOWN INDICATION
     Route: 048
  27. EZETROL [Suspect]
     Active Substance: EZETIMIBE
     Indication: PRODUCT USED FOR UNKNOWN INDICATION
     Route: 048
  28. LANTHANUM CARBONATE. [Suspect]
     Active Substance: LANTHANUM CARBONATE
     Dosage: UNK, UNKNOWN
     Route: 065

REACTIONS (1)
  - Peritonitis [Recovering/Resolving]
